FAERS Safety Report 19860159 (Version 3)
Quarter: 2022Q1

REPORT INFORMATION
  Report Type: Spontaneous
  Country: GB (occurrence: GB)
  Receive Date: 20210920
  Receipt Date: 20220225
  Transmission Date: 20220423
  Serious: Yes (Life-Threatening, Disabling, Other)
  Sender: FDA-Public Use
  Company Number: None

PATIENT
  Age: 74 Year
  Sex: Female
  Weight: 65 kg

DRUGS (6)
  1. POSACONAZOLE [Suspect]
     Active Substance: POSACONAZOLE
     Indication: Mucormycosis
     Dosage: 300 MILLIGRAM, QD
     Route: 051
     Dates: start: 20210610, end: 20210614
  2. AMPHOTERICIN B [Concomitant]
     Active Substance: AMPHOTERICIN B
     Indication: Ill-defined disorder
  3. ASPIRIN [Concomitant]
     Active Substance: ASPIRIN
     Indication: Ill-defined disorder
  4. ATORVASTATIN CALCIUM [Concomitant]
     Active Substance: ATORVASTATIN CALCIUM
     Indication: Ill-defined disorder
  5. RAMIPRIL [Concomitant]
     Active Substance: RAMIPRIL
     Indication: Ill-defined disorder
  6. REMDESIVIR [Concomitant]
     Active Substance: REMDESIVIR
     Indication: Ill-defined disorder

REACTIONS (5)
  - Pyrexia [Recovering/Resolving]
  - Deep vein thrombosis [Recovering/Resolving]
  - Fatigue [Recovering/Resolving]
  - Vaccination site pain [Recovering/Resolving]
  - Vaccination site swelling [Recovering/Resolving]

NARRATIVE: CASE EVENT DATE: 20210612
